FAERS Safety Report 4579270-5 (Version None)
Quarter: 2005Q1

REPORT INFORMATION
  Report Type: 
  Country: None (occurrence: None)
  Receive Date: 20050210
  Receipt Date: 20050210
  Transmission Date: 20050727
  Serious: No
  Sender: FDA-Public Use
  Company Number: None

PATIENT
  Sex: Female
  Weight: 66 kg

DRUGS (3)
  1. CYTARABINE [Suspect]
     Dosage: 100 MG/M2 /DAY CIV ON DAYS 1-7
     Dates: start: 20041226
  2. DAUNOMYCIN [Suspect]
     Dosage: 90 MG/M2 IV OVER 5-10 MG ON DAYS 1, 2 , AND 3
     Route: 042
  3. ETOPOSIDE [Suspect]
     Dosage: 213: 100 MG/M2 IV OVER 2 HOURS ON DAYS 1, 2 , AND 3
     Route: 042

REACTIONS (12)
  - ACIDOSIS [None]
  - ATRIAL BIGEMINY [None]
  - DISSEMINATED INTRAVASCULAR COAGULATION [None]
  - FEBRILE NEUTROPENIA [None]
  - GENERALISED OEDEMA [None]
  - HAEMORRHAGE [None]
  - HYPOXIA [None]
  - LIVER DISORDER [None]
  - PNEUMONIA [None]
  - PULMONARY HAEMORRHAGE [None]
  - RENAL FAILURE ACUTE [None]
  - SEPTIC SHOCK [None]
